FAERS Safety Report 8131291-1 (Version None)
Quarter: 2012Q1

REPORT INFORMATION
  Report Type: 
  Country: None (occurrence: None)
  Receive Date: 20120210
  Receipt Date: 20120210
  Transmission Date: 20120608
  Serious: Yes (Other)
  Sender: FDA-Public Use
  Company Number: None

PATIENT
  Age: 62 Year
  Sex: Male
  Weight: 108 kg

DRUGS (1)
  1. BOCEPREVIR [Suspect]
     Indication: HEPATITIS C
     Dosage: 800 MG TID PO
     Route: 048
     Dates: start: 20111122

REACTIONS (6)
  - FATIGUE [None]
  - MOOD SWINGS [None]
  - DIARRHOEA [None]
  - ANAEMIA [None]
  - URTICARIA [None]
  - FAECAL INCONTINENCE [None]
